FAERS Safety Report 7933739-1 (Version None)
Quarter: 2011Q4

REPORT INFORMATION
  Report Type: 
  Country: None (occurrence: None)
  Receive Date: 20111122
  Receipt Date: 20111121
  Transmission Date: 20120403
  Serious: Yes (Hospitalization, Other)
  Sender: FDA-Public Use
  Company Number: JP-PFIZER INC-2011266565

PATIENT
  Age: 63 Year
  Sex: Male
  Weight: 55.6 kg

DRUGS (9)
  1. METHYCOBAL [Concomitant]
     Dosage: UNK
  2. SELTOUCH [Concomitant]
     Dosage: UNK
     Route: 062
  3. ETODOLAC [Concomitant]
     Dosage: UNK
     Route: 048
  4. ZESTAK [Concomitant]
     Dosage: UNK
     Route: 062
  5. TRIAZOLAM [Concomitant]
     Dosage: UNK
     Route: 048
  6. LYRICA [Suspect]
     Indication: PAIN
     Dosage: 50MG/DAY
     Route: 048
     Dates: start: 20111012, end: 20111014
  7. REBAMIPIDE [Concomitant]
     Dosage: UNK
     Route: 048
  8. MYONAL [Concomitant]
     Dosage: UNK
  9. LYRICA [Suspect]
     Indication: SPINAL OSTEOARTHRITIS
     Dosage: 25 MG/DAY
     Route: 048
     Dates: start: 20111003, end: 20111011

REACTIONS (2)
  - INTERSTITIAL LUNG DISEASE [None]
  - DYSPNOEA [None]
